FAERS Safety Report 16341170 (Version 1)
Quarter: 2019Q2

REPORT INFORMATION
  Report Type: Spontaneous
  Country: IL (occurrence: IL)
  Receive Date: 20190522
  Receipt Date: 20190522
  Transmission Date: 20190711
  Serious: Yes (Hospitalization)
  Sender: FDA-Public Use
  Company Number: IL-TEVA-2019-IL-1052172

PATIENT
  Age: 58 Year
  Sex: Female

DRUGS (1)
  1. TAMOXIFEN TEVA 20 MG [Suspect]
     Active Substance: TAMOXIFEN
     Route: 065

REACTIONS (4)
  - Abdominal pain [Unknown]
  - Chills [Unknown]
  - Weight decreased [Unknown]
  - Asthenia [Unknown]
